FAERS Safety Report 18336867 (Version 2)
Quarter: 2020Q4

REPORT INFORMATION
  Report Type: Spontaneous
  Country: US (occurrence: US)
  Receive Date: 20201001
  Receipt Date: 20201012
  Transmission Date: 20210113
  Serious: No
  Sender: FDA-Public Use
  Company Number: US-AMGEN-USASP2020157743

PATIENT
  Age: 57 Year
  Sex: Female

DRUGS (4)
  1. OTEZLA [Suspect]
     Active Substance: APREMILAST
     Indication: NEUROPATHY PERIPHERAL
  2. OTEZLA [Suspect]
     Active Substance: APREMILAST
     Indication: AUTOIMMUNE DISORDER
     Dosage: 30 MILLIGRAM, BID
     Route: 048
     Dates: start: 20200914
  3. OTEZLA [Suspect]
     Active Substance: APREMILAST
     Indication: ARTHRITIS
  4. OTEZLA [Suspect]
     Active Substance: APREMILAST
     Indication: HERPES ZOSTER

REACTIONS (4)
  - Pain in extremity [Recovered/Resolved]
  - Skin ulcer [Recovered/Resolved]
  - Therapeutic response unexpected [Unknown]
  - Off label use [Unknown]

NARRATIVE: CASE EVENT DATE: 2020
